FAERS Safety Report 16589625 (Version 2)
Quarter: 2019Q3

REPORT INFORMATION
  Report Type: Spontaneous
  Country: US (occurrence: US)
  Receive Date: 20190718
  Receipt Date: 20190822
  Transmission Date: 20191004
  Serious: Yes (Life-Threatening, Hospitalization, Other)
  Sender: FDA-Public Use
  Company Number: US-TORRENT-00009002

PATIENT
  Age: 25 Year
  Sex: Female

DRUGS (1)
  1. CITALOPRAM [Suspect]
     Active Substance: CITALOPRAM HYDROBROMIDE
     Indication: PRODUCT USED FOR UNKNOWN INDICATION
     Route: 048

REACTIONS (4)
  - Pneumonia aspiration [Unknown]
  - Toxicity to various agents [Recovering/Resolving]
  - Intentional overdose [Recovering/Resolving]
  - Serotonin syndrome [Recovering/Resolving]
